FAERS Safety Report 18345371 (Version 5)
Quarter: 2020Q4

REPORT INFORMATION
  Report Type: Spontaneous
  Country: US (occurrence: US)
  Receive Date: 20201005
  Receipt Date: 20201116
  Transmission Date: 20210114
  Serious: Yes (Death)
  Sender: FDA-Public Use
  Company Number: US-IPSEN BIOPHARMACEUTICALS, INC.-2020-18066

PATIENT
  Age: 71 Year
  Sex: Male

DRUGS (3)
  1. CABOMETYX [Concomitant]
     Active Substance: CABOZANTINIB S-MALATE
  2. AFINITOR [Concomitant]
     Active Substance: EVEROLIMUS
  3. SOMATULINE DEPOT [Suspect]
     Active Substance: LANREOTIDE ACETATE
     Indication: NEUROENDOCRINE TUMOUR
     Dosage: UPPER OUTER BUTTOCKS
     Route: 058
     Dates: start: 20170215, end: 20201001

REACTIONS (2)
  - Hypoaesthesia [Unknown]
  - Death [Fatal]

NARRATIVE: CASE EVENT DATE: 20200924
